FAERS Safety Report 11364376 (Version 3)
Quarter: 2017Q2

REPORT INFORMATION
  Report Type: Spontaneous
  Country: US (occurrence: US)
  Receive Date: 20150811
  Receipt Date: 20170403
  Transmission Date: 20170829
  Serious: Yes (Other)
  Sender: FDA-Public Use
  Company Number: US-PFIZER INC-2015265931

PATIENT
  Age: 85 Year
  Sex: Female

DRUGS (9)
  1. PLAVIX [Concomitant]
     Active Substance: CLOPIDOGREL BISULFATE
     Indication: CARDIAC DISORDER
     Dosage: 75 MG, 1X/DAY
  2. PRANDIN [Concomitant]
     Active Substance: REPAGLINIDE
     Dosage: 1 MG, 2X/DAY
  3. CELEBREX [Suspect]
     Active Substance: CELECOXIB
     Indication: ARTHRITIS
     Dosage: 200 MG, 1X/DAY
  4. DIOVAN HCT [Concomitant]
     Active Substance: HYDROCHLOROTHIAZIDE\VALSARTAN
     Indication: HYPERTENSION
     Dosage: [VALSARTAN-320MG/HYDROCHLOROTHIAZIDE 25MG] ONCE A DAY
  5. COREG [Concomitant]
     Active Substance: CARVEDILOL
     Indication: CARDIAC DISORDER
     Dosage: 1X/DAY (3/25 MG)
  6. ASPIRIN. [Concomitant]
     Active Substance: ASPIRIN
     Indication: CARDIAC DISORDER
     Dosage: UNK, 1X/DAY
  7. LYRICA [Suspect]
     Active Substance: PREGABALIN
     Indication: PAIN IN EXTREMITY
     Dosage: 100 MG, 2X/DAY
  8. LYRICA [Suspect]
     Active Substance: PREGABALIN
     Indication: NEUROPATHY PERIPHERAL
  9. PRANDIN [Concomitant]
     Active Substance: REPAGLINIDE
     Indication: GLUCOSE TOLERANCE IMPAIRED
     Dosage: 1 MG, 3X/DAY

REACTIONS (2)
  - Pain in extremity [Unknown]
  - Limb discomfort [Unknown]
